FAERS Safety Report 8106637 (Version 4)
Quarter: 2014Q2

REPORT INFORMATION
  Report Type: Spontaneous
  Country: US (occurrence: US)
  Receive Date: 20110825
  Receipt Date: 20140625
  Transmission Date: 20141212
  Serious: Yes (Hospitalization)
  Sender: FDA-Public Use
  Company Number: US-GLAXOSMITHKLINE-A0942066A

PATIENT
  Sex: Female
  Weight: 114.5 kg

DRUGS (1)
  1. AVANDIA [Suspect]
     Indication: DIABETES MELLITUS
     Dosage: 4MG TWICE PER DAY
     Route: 048
     Dates: start: 200111, end: 200908

REACTIONS (3)
  - Cerebrovascular accident [Not Recovered/Not Resolved]
  - Cerebral infarction [Unknown]
  - Depression [Unknown]
